FAERS Safety Report 8485210 (Version 5)
Quarter: 2013Q1

REPORT INFORMATION
  Report Type: Spontaneous
  Country: US (occurrence: US)
  Receive Date: 20120330
  Receipt Date: 20130111
  Transmission Date: 20140127
  Serious: Yes (Hospitalization, Other)
  Sender: FDA-Public Use
  Company Number: US-ELI_LILLY_AND_COMPANY-US201112000718

PATIENT
  Age: 64 None
  Sex: Female
  Weight: 103.4 kg

DRUGS (44)
  1. FORTEO [Suspect]
     Indication: OSTEOPOROSIS
     Dosage: 20 UG,QD
     Dates: start: 20111007
  2. FORTEO [Suspect]
     Dosage: 20 UG, QD
  3. FORTEO [Suspect]
     Dosage: 20 UG, QD
  4. FORTEO [Suspect]
     Dosage: 20 UG, QD
  5. FORTEO [Suspect]
     Dosage: 20 UG, QD
     Route: 065
  6. FORTEO [Suspect]
     Dosage: 20 UG, QD
     Route: 065
  7. FORTEO [Suspect]
     Dosage: 20 UG, QD
     Route: 065
  8. DILTIAZEM [Concomitant]
     Dosage: 240 MG, UNK
  9. DIOVAN [Concomitant]
     Dosage: 160 MG, QD
  10. PROTONIX [Concomitant]
     Dosage: 40 MG, QD
  11. EFFEXOR XR [Concomitant]
  12. ZOLOFT [Concomitant]
  13. LEVOTHYROXINE [Concomitant]
     Dosage: 50 UG, QD
  14. GABAPENTIN [Concomitant]
     Dosage: 300 MG, TID
  15. VITAMIN D NOS [Concomitant]
  16. CALCIUM 600 PLUS VITAMIN D [Concomitant]
  17. NIASPAN [Concomitant]
     Dosage: 500 MG, QD
  18. CRESTOR [Concomitant]
     Dosage: 40 MG, QD
  19. XYZAL [Concomitant]
  20. SINGULAIR [Concomitant]
     Dosage: 10 MG, UNK
  21. LORAZEPAM [Concomitant]
     Dosage: 0.05 MG, TID
  22. TRAZODONE [Concomitant]
  23. FLEXERIL [Concomitant]
     Dosage: 10 MG, TID
  24. OXYGEN [Concomitant]
     Dosage: 2 L, QD
  25. ADVAIR [Concomitant]
     Dosage: 50 UG, UNK
  26. LANTUS [Concomitant]
     Dosage: 10 IU, UNK
  27. ADVIL /00109201/ [Concomitant]
     Dosage: UNK
  28. VENLAFAXINE [Concomitant]
     Dosage: 75 MG, BID
  29. TRAZODONE [Concomitant]
     Dosage: 150 MG, QD
  30. HYDROCODONE [Concomitant]
     Dosage: UNK, TID
  31. LEVOCETIRIZINE [Concomitant]
     Dosage: 5 MG, QD
  32. TANDEM PLUS [Concomitant]
     Dosage: UNK UNK, QD
  33. CARAFATE [Concomitant]
     Indication: GASTROOESOPHAGEAL REFLUX DISEASE
     Dosage: 10 ML, EVERY 6 HRS
  34. LIDODERM [Concomitant]
     Indication: CHEST PAIN
     Dosage: UNK, BID
  35. ASPIRIN [Concomitant]
     Dosage: 81 MG, UNK
  36. ALBUTEROL [Concomitant]
     Dosage: UNK, EVERY 6 HRS
  37. VENTOLIN HFA [Concomitant]
     Indication: ASTHMA
  38. SPIRONOLACTONE [Concomitant]
     Dosage: 25 MG, UNK
  39. MELOXICAM [Concomitant]
     Dosage: 15 MG, UNK
  40. HUMALOG                                 /GFR/ [Concomitant]
     Dosage: UNK
     Dates: start: 201108
  41. NITROGLYCERINE [Concomitant]
     Dosage: 0.4 MG, UNK
  42. SPIRIVA [Concomitant]
     Dosage: UNK
  43. VENLAFAXINE [Concomitant]
     Dosage: 150 MG, UNK
  44. PROMETHAZINE [Concomitant]
     Dosage: 25 MG, UNK

REACTIONS (43)
  - Chronic obstructive pulmonary disease [Unknown]
  - Choking [Unknown]
  - Oesophageal stenosis [Unknown]
  - Hypersensitivity [Unknown]
  - Hypersensitivity [Unknown]
  - Osteonecrosis [Unknown]
  - Bile duct obstruction [Unknown]
  - Back pain [Unknown]
  - Back disorder [Unknown]
  - Rash [Unknown]
  - Diarrhoea [Recovered/Resolved]
  - Chest pain [Unknown]
  - Vomiting [Recovered/Resolved]
  - Arthralgia [Unknown]
  - Pneumonia [Unknown]
  - Pancreatitis [Unknown]
  - Chronic obstructive pulmonary disease [Unknown]
  - Chronic obstructive pulmonary disease [Unknown]
  - Chronic obstructive pulmonary disease [Unknown]
  - Chronic obstructive pulmonary disease [Unknown]
  - Cataract [Recovering/Resolving]
  - Dehydration [Recovering/Resolving]
  - Mammoplasty [Unknown]
  - Gastroenteritis viral [Recovering/Resolving]
  - Blood magnesium decreased [Unknown]
  - Blood potassium decreased [Unknown]
  - Device occlusion [Unknown]
  - Arthropathy [Not Recovered/Not Resolved]
  - Dry throat [Not Recovered/Not Resolved]
  - Oropharyngeal pain [Not Recovered/Not Resolved]
  - Local swelling [Unknown]
  - Gait disturbance [Unknown]
  - Mobility decreased [Unknown]
  - Malaise [Recovering/Resolving]
  - Arthralgia [Recovering/Resolving]
  - Vomiting [Recovering/Resolving]
  - Diarrhoea [Recovering/Resolving]
  - Diarrhoea [Unknown]
  - Constipation [Unknown]
  - Neck pain [Unknown]
  - Hypersensitivity [Unknown]
  - Drug dose omission [Recovered/Resolved]
  - Postoperative wound infection [Unknown]
